FAERS Safety Report 22400253 (Version 1)
Quarter: 2023Q2

REPORT INFORMATION
  Report Type: Spontaneous
  Country: US (occurrence: None)
  Receive Date: 20230601
  Receipt Date: 20230601
  Transmission Date: 20230721
  Serious: Yes (Disabling, Other)
  Sender: FDA-Public Use
  Company Number: None

PATIENT
  Age: 62 Year
  Sex: Female
  Weight: 66.6 kg

DRUGS (2)
  1. PROLIA [Suspect]
     Active Substance: DENOSUMAB
     Indication: Osteoporosis
  2. VITAMIN D [Concomitant]
     Active Substance: VITAMIN D NOS

REACTIONS (11)
  - Myalgia [None]
  - Arthralgia [None]
  - Bone pain [None]
  - Gait disturbance [None]
  - Musculoskeletal stiffness [None]
  - Decreased activity [None]
  - Dyspepsia [None]
  - Alopecia [None]
  - Nephrolithiasis [None]
  - Palpitations [None]
  - Toothache [None]

NARRATIVE: CASE EVENT DATE: 20230103
